FAERS Safety Report 21411185 (Version 1)
Quarter: 2022Q4

REPORT INFORMATION
  Report Type: Spontaneous
  Country: CN (occurrence: CN)
  Receive Date: 20221005
  Receipt Date: 20221005
  Transmission Date: 20230113
  Serious: Yes (Other)
  Sender: FDA-Public Use
  Company Number: CN-009507513-2210CHN000168

PATIENT
  Age: 53 Year
  Sex: Male
  Weight: 60 kg

DRUGS (6)
  1. CILASTATIN SODIUM\IMIPENEM [Suspect]
     Active Substance: CILASTATIN SODIUM\IMIPENEM
     Indication: Pneumonia
     Dosage: 1 G, TID
     Route: 041
     Dates: start: 20210626, end: 20210629
  2. PROPOFOL [Suspect]
     Active Substance: PROPOFOL
     Indication: Pain
     Dosage: DOSE: 0.6 MG, FREQUENCY: QD, ROUTE PUMP INJECTION
     Route: 050
     Dates: start: 20210622, end: 20210627
  3. PROPOFOL [Suspect]
     Active Substance: PROPOFOL
     Indication: Sedation
  4. PROPOFOL [Suspect]
     Active Substance: PROPOFOL
     Indication: Analgesic therapy
  5. OCTREOTIDE ACETATE [Suspect]
     Active Substance: OCTREOTIDE ACETATE
     Indication: Pancreatic disorder
     Dosage: 0.1 G, THREE TIMES PER DAY, SUBCUTANEOUS
     Route: 058
     Dates: start: 20210624, end: 20210709
  6. ULINASTATIN [Concomitant]
     Active Substance: ULINASTATIN
     Indication: Pneumonia
     Dosage: DOSE: 10 *10^4 U (ALSO REPORTED AS 100000 DOSAGE FORM), ONCE A DAY, VIA PUMP INJECTION
     Route: 050
     Dates: start: 20210623, end: 20210628

REACTIONS (1)
  - Pancreatitis [Recovering/Resolving]

NARRATIVE: CASE EVENT DATE: 20210627
